FAERS Safety Report 14377829 (Version 4)
Quarter: 2018Q1

REPORT INFORMATION
  Report Type: Spontaneous
  Country: JP (occurrence: JP)
  Receive Date: 20180111
  Receipt Date: 20180221
  Transmission Date: 20180509
  Serious: Yes (Hospitalization)
  Sender: FDA-Public Use
  Company Number: JP-ALLERGAN-1800878US

PATIENT
  Age: 79 Year
  Sex: Female

DRUGS (3)
  1. PREDNISOLONE. [Concomitant]
     Active Substance: PREDNISOLONE
     Indication: RHEUMATOID ARTHRITIS
     Dosage: 3 MG, QD
     Route: 065
  2. METHOTREXATE. [Concomitant]
     Active Substance: METHOTREXATE
     Indication: RHEUMATOID ARTHRITIS
     Dosage: 6 MG, Q WEEK
     Route: 065
  3. RISEDRONATE SODIUM - BP [Suspect]
     Active Substance: RISEDRONATE SODIUM
     Indication: OSTEOPOROSIS
     Dosage: 17.5 MG, Q WEEK
     Route: 048

REACTIONS (6)
  - Skin exfoliation [Unknown]
  - Swelling face [Unknown]
  - Erythema [Unknown]
  - Osteonecrosis of jaw [Recovering/Resolving]
  - Abscess drainage [Unknown]
  - Gastric ulcer [Recovering/Resolving]
